FAERS Safety Report 10432050 (Version 1)
Quarter: 2014Q3

REPORT INFORMATION
  Report Type: Spontaneous
  Country: US (occurrence: US)
  Receive Date: 20140905
  Receipt Date: 20140905
  Transmission Date: 20150326
  Serious: No
  Sender: FDA-Public Use
  Company Number: US-BIOGENIDEC-2014BI089193

PATIENT
  Age: 54 Year
  Sex: Female

DRUGS (1)
  1. TECFIDERA [Suspect]
     Active Substance: DIMETHYL FUMARATE
     Indication: MULTIPLE SCLEROSIS

REACTIONS (8)
  - Nausea [Unknown]
  - Chills [Unknown]
  - Gastric disorder [Unknown]
  - Flushing [Unknown]
  - Dizziness [Unknown]
  - Gastrointestinal disorder [Unknown]
  - Feeling of body temperature change [Unknown]
  - Pyrexia [Unknown]

NARRATIVE: CASE EVENT DATE: 20140824
